FAERS Safety Report 9334705 (Version 1)
Quarter: 2013Q2

REPORT INFORMATION
  Report Type: Spontaneous
  Country: US (occurrence: US)
  Receive Date: 20130606
  Receipt Date: 20130606
  Transmission Date: 20140414
  Serious: No
  Sender: FDA-Public Use
  Company Number: US-AMGEN-USASP2013014493

PATIENT
  Age: 62 Year
  Sex: Female

DRUGS (18)
  1. PROLIA [Suspect]
     Indication: OSTEOPOROSIS POSTMENOPAUSAL
     Dosage: 60 MG, UNK
     Dates: start: 20121126
  2. METFORMIN [Concomitant]
     Dosage: UNK UNK, BID
  3. OMEPRAZOLE [Concomitant]
     Dosage: UNK UNK, BID
  4. LISINOPRIL [Concomitant]
     Dosage: 10 MG, QD
  5. AZITHROMYCIN [Concomitant]
  6. ADVAIR [Concomitant]
     Dosage: UNK UNK, BID
  7. REGLAN                             /00041901/ [Concomitant]
     Dates: start: 20121219
  8. TACROLIMUS [Concomitant]
  9. BACTRIM [Concomitant]
  10. VITAMIN D                          /00107901/ [Concomitant]
     Dosage: 50000 IU, QWK
  11. PREDNISONE [Concomitant]
     Dosage: 5 MG, QD
  12. FOLIC ACID [Concomitant]
     Dosage: 1 MG, QD
  13. CALCIUM WITH VITAMIN D             /00944201/ [Concomitant]
     Dosage: 500 MG, BID
  14. MULTIVITAMIN                       /00097801/ [Concomitant]
     Dosage: UNK UNK, QD
  15. LANTUS [Concomitant]
     Dosage: 35 IU, QD
  16. CELLCEPT                           /01275102/ [Concomitant]
     Dosage: UNK UNK, BID
  17. ALBUTEROL                          /00139501/ [Concomitant]
     Dosage: UNK UNK, AS NECESSARY
  18. NOVOLIN [Concomitant]

REACTIONS (1)
  - Bone pain [Not Recovered/Not Resolved]
